FAERS Safety Report 7969322-1 (Version None)
Quarter: 2011Q4

REPORT INFORMATION
  Report Type: 
  Country: None (occurrence: None)
  Receive Date: 20111209
  Receipt Date: 20111130
  Transmission Date: 20120403
  Serious: Yes (Disabling)
  Sender: FDA-Public Use
  Company Number: BR-ASTRAZENECA-2010SE04163

PATIENT
  Sex: Female

DRUGS (6)
  1. NEXIUM [Suspect]
     Route: 048
     Dates: start: 20100101
  2. NEXIUM [Suspect]
     Indication: ABDOMINAL PAIN UPPER
     Route: 048
     Dates: start: 20070101, end: 20090101
  3. NEXIUM [Suspect]
     Route: 048
     Dates: start: 20100101
  4. NEXIUM [Suspect]
     Indication: ULCER
     Route: 048
     Dates: start: 20070101, end: 20090101
  5. NEXIUM [Suspect]
     Indication: HERNIA
     Route: 048
     Dates: start: 20070101, end: 20090101
  6. NEXIUM [Suspect]
     Route: 048
     Dates: start: 20100101

REACTIONS (5)
  - HYPOKINESIA [None]
  - UPPER LIMB FRACTURE [None]
  - PARAESTHESIA [None]
  - PAIN IN EXTREMITY [None]
  - FALL [None]
